FAERS Safety Report 4770765-8 (Version None)
Quarter: 2005Q3

REPORT INFORMATION
  Report Type: 
  Country: None (occurrence: None)
  Receive Date: 20050914
  Receipt Date: 20050914
  Transmission Date: 20060218
  Serious: Yes (Hospitalization)
  Sender: FDA-Public Use
  Company Number: None

PATIENT
  Age: 51 Year
  Sex: Female

DRUGS (6)
  1. OLANZAPINE [Suspect]
     Indication: MENTAL DISORDER
     Dosage: 10 MG   QHS   PO
     Route: 048
  2. PREVACID [Concomitant]
  3. NAPROXEN [Concomitant]
  4. GUAIFENSIN [Concomitant]
  5. DOCUSATE SODIUM [Concomitant]
  6. OMEPRAZOLE [Concomitant]

REACTIONS (2)
  - DIABETES MELLITUS [None]
  - HYPERTRIGLYCERIDAEMIA [None]
